APPROVED DRUG PRODUCT: IOPAMIDOL-300
Active Ingredient: IOPAMIDOL
Strength: 61%
Dosage Form/Route: INJECTABLE;INJECTION
Application: A074638 | Product #001
Applicant: ABBVIE INC
Approved: Apr 30, 1997 | RLD: No | RS: No | Type: DISCN